FAERS Safety Report 8807620 (Version 2)
Quarter: 2012Q4

REPORT INFORMATION
  Report Type: 
  Country: US (occurrence: US)
  Receive Date: 20120925
  Receipt Date: 20121009
  Transmission Date: 20130627
  Serious: No
  Sender: FDA-Public Use
  Company Number: US-PFIZER INC-2012231643

PATIENT
  Age: 23 Year
  Sex: Male
  Weight: 114 kg

DRUGS (2)
  1. VANCOMYCIN HCL [Suspect]
     Indication: CELLULITIS
     Dosage: 1.5 g, every 12 hrs
     Route: 042
     Dates: start: 20120806, end: 20120808
  2. ZOSYN [Concomitant]
     Indication: CELLULITIS
     Dosage: 3.375 g, every 8 hrs
     Dates: start: 20120806, end: 20120809

REACTIONS (1)
  - Antibiotic level above therapeutic [Recovered/Resolved]
